FAERS Safety Report 18894509 (Version 1)
Quarter: 2021Q1

REPORT INFORMATION
  Report Type: Spontaneous
  Country: IT (occurrence: IT)
  Receive Date: 20210215
  Receipt Date: 20210215
  Transmission Date: 20210420
  Serious: Yes (Death, Other)
  Sender: FDA-Public Use
  Company Number: IT-PFIZER INC-2021126913

PATIENT
  Age: 63 Year
  Sex: Female

DRUGS (2)
  1. MEROPENEM. [Suspect]
     Active Substance: MEROPENEM
     Indication: ANTIBIOTIC THERAPY
     Dosage: 1 G, 3X/DAY (EVERY 8 HOURS)
  2. LEVOFLOXACIN. [Suspect]
     Active Substance: LEVOFLOXACIN
     Indication: ANTIBIOTIC THERAPY
     Dosage: 500 MG, 2X/DAY (EVERY 12 HOURS)

REACTIONS (7)
  - Hypotension [Unknown]
  - Oxygen saturation decreased [Unknown]
  - Product contamination [Unknown]
  - Drug ineffective [Unknown]
  - Septic shock [Fatal]
  - Poor quality product administered [Unknown]
  - Tachycardia [Unknown]
